FAERS Safety Report 6815680-0 (Version None)
Quarter: 2010Q3

REPORT INFORMATION
  Report Type: 
  Country: None (occurrence: None)
  Receive Date: 20100702
  Receipt Date: 20100623
  Transmission Date: 20110219
  Serious: Yes (Hospitalization, Other)
  Sender: FDA-Public Use
  Company Number: US-ABBOTT-10P-163-0653295-00

PATIENT
  Sex: Female
  Weight: 65.83 kg

DRUGS (14)
  1. HUMIRA [Suspect]
     Indication: RHEUMATOID ARTHRITIS
     Route: 058
     Dates: start: 20050101
  2. METHOTREXATE [Concomitant]
     Indication: RHEUMATOID ARTHRITIS
  3. LEUCOVORIN CALCIUM [Concomitant]
     Indication: ADVERSE DRUG REACTION
  4. LEUCOVORIN CALCIUM [Concomitant]
     Indication: PROPHYLAXIS
  5. MOBIC [Concomitant]
     Indication: RHEUMATOID ARTHRITIS
  6. CLONAZEPAM [Concomitant]
     Indication: FIBROMYALGIA
  7. TRAZODONE HCL [Concomitant]
     Indication: FIBROMYALGIA
  8. PREVACID [Concomitant]
     Indication: GASTROOESOPHAGEAL REFLUX DISEASE
  9. CATAPRES-TTS-1 [Concomitant]
     Indication: HYPERTENSION
  10. ASPIRIN [Concomitant]
     Indication: PRODUCT USED FOR UNKNOWN INDICATION
  11. COREG [Concomitant]
     Indication: HYPERTENSION
  12. BENICAR [Concomitant]
     Indication: HYPERTENSION
  13. TOPAMAX [Concomitant]
     Indication: MIGRAINE
  14. FIORICET [Concomitant]
     Indication: HEADACHE

REACTIONS (6)
  - DYSPNOEA [None]
  - FATIGUE [None]
  - MITRAL VALVE INCOMPETENCE [None]
  - MITRAL VALVE PROLAPSE [None]
  - MUSCULAR WEAKNESS [None]
  - PULMONARY HYPERTENSION [None]
